FAERS Safety Report 6708444-X (Version None)
Quarter: 2010Q2

REPORT INFORMATION
  Report Type: 
  Country: None (occurrence: None)
  Receive Date: 20100503
  Receipt Date: 20090831
  Transmission Date: 20101027
  Serious: No
  Sender: FDA-Public Use
  Company Number: US-ASTRAZENECA-2009SE10755

PATIENT
  Sex: Female
  Weight: 56.7 kg

DRUGS (5)
  1. NEXIUM [Suspect]
     Route: 048
  2. CALCIUM SUPPLEMENT [Concomitant]
  3. MAGNESIUM SUPPLEMENT [Concomitant]
  4. DIGICOL [Concomitant]
     Indication: BONE DISORDER
  5. DULCOLAX [Concomitant]
     Indication: CONSTIPATION

REACTIONS (6)
  - CONSTIPATION [None]
  - COUGH [None]
  - DRUG INEFFECTIVE [None]
  - ENTERITIS INFECTIOUS [None]
  - LYMPHADENOPATHY [None]
  - PRODUCTIVE COUGH [None]
